FAERS Safety Report 15689783 (Version 1)
Quarter: 2018Q4

REPORT INFORMATION
  Report Type: Spontaneous
  Country: US (occurrence: US)
  Receive Date: 20181126
  Receipt Date: 20181126
  Transmission Date: 20190205
  Serious: Yes (Hospitalization)
  Sender: FDA-Public Use
  Company Number: None

PATIENT
  Age: 20 Year
  Sex: Male
  Weight: 64.1 kg

DRUGS (4)
  1. METHOTREXATE. [Suspect]
     Active Substance: METHOTREXATE
     Dates: end: 20181114
  2. MERCAPTOPURINE. [Suspect]
     Active Substance: MERCAPTOPURINE
     Dates: end: 20181114
  3. PREDNISONE. [Suspect]
     Active Substance: PREDNISONE
     Dates: end: 20181104
  4. VINCRISTINE [Suspect]
     Active Substance: VINCRISTINE
     Dates: end: 20181031

REACTIONS (4)
  - Central nervous system vasculitis [None]
  - Cerebral infarction [None]
  - Blood culture positive [None]
  - Cryptococcosis [None]

NARRATIVE: CASE EVENT DATE: 20181115
